FAERS Safety Report 4604422-5 (Version None)
Quarter: 2005Q2

REPORT INFORMATION
  Report Type: 
  Country: None (occurrence: None)
  Receive Date: 20050223
  Receipt Date: 20041214
  Transmission Date: 20051028
  Serious: Yes (Other)
  Sender: FDA-Public Use
  Company Number: PHEH2004US13293

PATIENT
  Age: 74 Year
  Sex: Male

DRUGS (7)
  1. ZELNORM [Suspect]
     Indication: CONSTIPATION
     Dosage: 6 MG, BID, ORAL
     Route: 048
     Dates: start: 20041001
  2. PROSCAR [Concomitant]
  3. FIORICET [Concomitant]
  4. PRILOSEC [Concomitant]
  5. XANAX [Concomitant]
  6. PROZAC [Concomitant]
  7. PRAVACHOL [Concomitant]

REACTIONS (3)
  - DIZZINESS [None]
  - HEART RATE INCREASED [None]
  - HYPOTENSION [None]
